FAERS Safety Report 9550993 (Version 2)
Quarter: 2014Q2

REPORT INFORMATION
  Report Type: Spontaneous
  Country: US (occurrence: US)
  Receive Date: 20130924
  Receipt Date: 20140402
  Transmission Date: 20141212
  Serious: No
  Sender: FDA-Public Use
  Company Number: US-SANOFI-AVENTIS-2013SA051220

PATIENT
  Age: 54 Year
  Sex: Female
  Weight: 70 kg

DRUGS (21)
  1. AUBAGIO [Suspect]
     Indication: MULTIPLE SCLEROSIS
     Route: 048
     Dates: start: 20130516
  2. LYRICA [Concomitant]
  3. REQUIP [Concomitant]
  4. LIPITOR [Concomitant]
  5. PROTONIX [Concomitant]
  6. OMEPRAZOLE [Concomitant]
  7. ADVAIR [Concomitant]
  8. AMBIEN [Concomitant]
  9. FLONASE [Concomitant]
  10. KLONOPIN [Concomitant]
  11. XYZAL [Concomitant]
  12. CELEBREX [Concomitant]
  13. EVOXAC [Concomitant]
  14. VIVELLE-DOT [Concomitant]
  15. ZOLOFT [Concomitant]
  16. XOPENEX [Concomitant]
  17. SUMATRIPTAN [Concomitant]
  18. ULTRACET [Concomitant]
  19. VOLTAREN [Concomitant]
  20. VITAMINS [Concomitant]
  21. FISH OIL [Concomitant]

REACTIONS (4)
  - Flushing [Recovered/Resolved]
  - Headache [Recovered/Resolved]
  - Erythema [Recovered/Resolved]
  - Alopecia [Not Recovered/Not Resolved]
